FAERS Safety Report 7126540-2 (Version None)
Quarter: 2010Q4

REPORT INFORMATION
  Report Type: 
  Country: None (occurrence: None)
  Receive Date: 20101129
  Receipt Date: 20101115
  Transmission Date: 20110411
  Serious: Yes (Life-Threatening, Hospitalization)
  Sender: FDA-Public Use
  Company Number: FR-CELGENEUS-056-21880-08110750

PATIENT
  Sex: Male

DRUGS (9)
  1. REVLIMID [Suspect]
     Indication: MULTIPLE MYELOMA
     Route: 048
     Dates: start: 20060727, end: 20081003
  2. REVLIMID [Suspect]
     Route: 048
     Dates: start: 20060401
  3. REVLIMID [Suspect]
     Route: 048
     Dates: start: 20080801
  4. REVLIMID [Suspect]
     Route: 048
     Dates: end: 20080901
  5. AUGMENTIN [Concomitant]
     Route: 065
     Dates: start: 20081001
  6. AUGMENTIN [Concomitant]
     Route: 065
     Dates: start: 20081101
  7. OFLOCET [Concomitant]
     Route: 065
     Dates: start: 20081001
  8. PYOSTACINE [Concomitant]
     Route: 065
  9. RIFAMPICIN [Concomitant]
     Route: 065

REACTIONS (2)
  - EPSTEIN-BARR VIRAEMIA [None]
  - HISTIOCYTOSIS HAEMATOPHAGIC [None]
